FAERS Safety Report 19581149 (Version 1)
Quarter: 2021Q3

REPORT INFORMATION
  Report Type: Spontaneous
  Country: GB (occurrence: GB)
  Receive Date: 20210719
  Receipt Date: 20210719
  Transmission Date: 20211014
  Serious: Yes (Hospitalization)
  Sender: FDA-Public Use
  Company Number: GB-TEVA-2021-GB-1932380

PATIENT
  Age: 40 Year

DRUGS (4)
  1. BISACODYL. [Concomitant]
     Active Substance: BISACODYL
     Dosage: 2 DOSAGE FORMS DAILY; AT NIGHT
  2. TROSPIUM [Concomitant]
     Active Substance: TROSPIUM
     Dosage: 40 MILLIGRAM DAILY; BEFORE FOOD, 20 MG
  3. OMEPRAZOLE. [Suspect]
     Active Substance: OMEPRAZOLE
     Dosage: 20 MILLIGRAM DAILY;
     Route: 065
  4. FERROUS FUMARATE [Concomitant]
     Active Substance: FERROUS FUMARATE
     Dosage: 210 MILLIGRAM DAILY;

REACTIONS (2)
  - Tachycardia [Unknown]
  - Arrhythmia [Recovered/Resolved]
